FAERS Safety Report 6270839-9 (Version None)
Quarter: 2009Q3

REPORT INFORMATION
  Report Type: 
  Country: None (occurrence: None)
  Receive Date: 20090715
  Receipt Date: 20090709
  Transmission Date: 20100115
  Serious: Yes (Hospitalization)
  Sender: FDA-Public Use
  Company Number: CHPA2009US15036

PATIENT
  Sex: Male

DRUGS (1)
  1. LAMISIL AT [Suspect]
     Indication: SKIN DISORDER
     Dosage: QD, TOPICAL
     Route: 061
     Dates: start: 20090705, end: 20090705

REACTIONS (1)
  - VASCULITIS [None]
